FAERS Safety Report 21550234 (Version 1)
Quarter: 2022Q4

REPORT INFORMATION
  Report Type: Spontaneous
  Country: DE (occurrence: DE)
  Receive Date: 20221103
  Receipt Date: 20221103
  Transmission Date: 20230113
  Serious: Yes (Life-Threatening, Hospitalization, Other)
  Sender: FDA-Public Use
  Company Number: DE-ASPEN-GLO2021DE004944

PATIENT
  Age: 52 Year
  Sex: Male

DRUGS (6)
  1. LIDOCAINE HYDROCHLORIDE [Suspect]
     Active Substance: LIDOCAINE HYDROCHLORIDE
     Indication: Peripheral nerve operation
     Dosage: 20 ML, ONCE/SINGLE (1 DOSAGE TOTAL)
     Route: 065
  2. LIDOCAINE HYDROCHLORIDE [Suspect]
     Active Substance: LIDOCAINE HYDROCHLORIDE
     Indication: Local anaesthesia
  3. ROPIVACAINE HYDROCHLORIDE [Suspect]
     Active Substance: ROPIVACAINE HYDROCHLORIDE
     Indication: Peripheral nerve operation
     Dosage: 20 ML, ONCE/SINGLE (1 DOSAGE TOTAL)
     Route: 065
  4. ROPIVACAINE HYDROCHLORIDE [Suspect]
     Active Substance: ROPIVACAINE HYDROCHLORIDE
     Indication: Local anaesthesia
     Dosage: 10 ML, ONCE/SINGLE (1 DOSAGE TOTAL)
     Route: 065
  5. PROPOFOL [Concomitant]
     Active Substance: PROPOFOL
     Indication: General anaesthesia
     Dosage: UNK
     Route: 042
  6. SUFENTANIL [Concomitant]
     Active Substance: SUFENTANIL
     Indication: General anaesthesia
     Dosage: UNK
     Route: 042

REACTIONS (9)
  - Pneumonia aspiration [Unknown]
  - Dysphagia [Unknown]
  - Nervous system disorder [Recovering/Resolving]
  - Aggression [Recovering/Resolving]
  - Neurotoxicity [Recovering/Resolving]
  - Anxiety [Recovering/Resolving]
  - Gait disturbance [Recovering/Resolving]
  - Partial seizures [Recovering/Resolving]
  - Altered state of consciousness [Recovering/Resolving]
